FAERS Safety Report 4816284-1 (Version None)
Quarter: 2005Q4

REPORT INFORMATION
  Report Type: 
  Country: None (occurrence: None)
  Receive Date: 20051031
  Receipt Date: 20050802
  Transmission Date: 20060501
  Serious: Yes (Hospitalization, Other)
  Sender: FDA-Public Use
  Company Number: US-MERCK-0508USA01122

PATIENT
  Age: 62 Year
  Sex: Female
  Weight: 82 kg

DRUGS (10)
  1. VIOXX [Suspect]
     Indication: BACK PAIN
     Route: 048
     Dates: start: 19991105, end: 20040930
  2. VIOXX [Suspect]
     Indication: ARTHRITIS
     Route: 048
     Dates: start: 19991105, end: 20040930
  3. ZYRTEC [Concomitant]
     Indication: HYPERSENSITIVITY
     Route: 065
  4. ASPIRIN [Concomitant]
     Indication: ROUTINE HEALTH MAINTENANCE
     Route: 065
  5. PRILOSEC [Concomitant]
     Indication: STOMACH DISCOMFORT
     Route: 065
  6. HYDROCHLOROTHIAZIDE [Concomitant]
     Indication: ROUTINE HEALTH MAINTENANCE
     Route: 065
  7. TYLENOL (CAPLET) [Concomitant]
     Indication: PYREXIA
     Route: 065
  8. TYLENOL (CAPLET) [Concomitant]
     Indication: HEADACHE
     Route: 065
  9. VIOXX [Suspect]
     Route: 048
     Dates: start: 19991105, end: 20040930
  10. VIOXX [Suspect]
     Route: 048
     Dates: start: 19991105, end: 20040930

REACTIONS (4)
  - ADVERSE EVENT [None]
  - CEREBROVASCULAR ACCIDENT [None]
  - HYPERTENSION [None]
  - MYOCARDIAL INFARCTION [None]
